FAERS Safety Report 7242938-6 (Version None)
Quarter: 2011Q1

REPORT INFORMATION
  Report Type: 
  Country: None (occurrence: None)
  Receive Date: 20110125
  Receipt Date: 20110124
  Transmission Date: 20110831
  Serious: No
  Sender: FDA-Public Use
  Company Number: US-ROXANE LABORATORIES, INC.-2011-RO-00097RO

PATIENT
  Sex: Male

DRUGS (1)
  1. METHADONE HYDROCHLORIDE [Suspect]
     Indication: PAIN
     Dosage: 45 MG
     Dates: start: 20080101

REACTIONS (3)
  - TABLET PHYSICAL ISSUE [None]
  - PRODUCT COLOUR ISSUE [None]
  - DRUG INEFFECTIVE [None]
